FAERS Safety Report 10238350 (Version 1)
Quarter: 2014Q2

REPORT INFORMATION
  Report Type: Spontaneous
  Country: TH (occurrence: TH)
  Receive Date: 20140616
  Receipt Date: 20140616
  Transmission Date: 20141212
  Serious: Yes (Disabling, Other)
  Sender: FDA-Public Use
  Company Number: TH-JNJFOC-20140608276

PATIENT
  Sex: Male

DRUGS (1)
  1. TRAMADOL HYDROCHLORIDE [Suspect]
     Indication: PRODUCT USED FOR UNKNOWN INDICATION
     Route: 048

REACTIONS (7)
  - Cognitive disorder [Recovering/Resolving]
  - Loss of consciousness [Recovering/Resolving]
  - Drug abuse [Recovering/Resolving]
  - Abnormal behaviour [Recovering/Resolving]
  - Hypersomnia [Recovering/Resolving]
  - Wrong technique in drug usage process [Recovering/Resolving]
  - Overdose [Recovering/Resolving]
